FAERS Safety Report 10966007 (Version 1)
Quarter: 2015Q1

REPORT INFORMATION
  Report Type: Spontaneous
  Country: US (occurrence: US)
  Receive Date: 20150330
  Receipt Date: 20150330
  Transmission Date: 20150721
  Serious: No
  Sender: FDA-Public Use
  Company Number: US-MYLANLABS-2014M1002086

PATIENT
  Sex: Female
  Weight: 86.17 kg

DRUGS (1)
  1. FENTANYL TRANSDERMAL SYSTEM [Suspect]
     Active Substance: FENTANYL
     Indication: CYSTITIS INTERSTITIAL
     Dosage: 100 ?G, QH, CHANGED Q 48HR
     Route: 062
     Dates: start: 2009

REACTIONS (2)
  - Application site rash [Not Recovered/Not Resolved]
  - Application site haemorrhage [Not Recovered/Not Resolved]
